FAERS Safety Report 12975618 (Version 3)
Quarter: 2017Q1

REPORT INFORMATION
  Report Type: Spontaneous
  Country: US (occurrence: US)
  Receive Date: 20161125
  Receipt Date: 20170202
  Transmission Date: 20170428
  Serious: Yes (Death)
  Sender: FDA-Public Use
  Company Number: US-UNITED THERAPEUTICS-UNT-2016-017863

PATIENT
  Age: 76 Year
  Sex: Male
  Weight: 69.39 kg

DRUGS (3)
  1. TYVASO [Suspect]
     Active Substance: TREPROSTINIL
     Dosage: 12 ?G, QID
  2. TYVASO [Suspect]
     Active Substance: TREPROSTINIL
     Indication: PULMONARY HYPERTENSION
     Dosage: 18-54 MICROGRAMS, QID
     Dates: start: 20160920
  3. XARELTO [Concomitant]
     Active Substance: RIVAROXABAN
     Indication: PRODUCT USED FOR UNKNOWN INDICATION

REACTIONS (10)
  - Chronic obstructive pulmonary disease [Unknown]
  - Terminal state [Fatal]
  - Loss of consciousness [Unknown]
  - Oxygen saturation decreased [Not Recovered/Not Resolved]
  - Malaise [Unknown]
  - Hospice care [Unknown]
  - Hypotension [Unknown]
  - Condition aggravated [Unknown]
  - General physical health deterioration [Unknown]
  - Dyspnoea exertional [Unknown]

NARRATIVE: CASE EVENT DATE: 201611
